FAERS Safety Report 7177408-7 (Version None)
Quarter: 2010Q4

REPORT INFORMATION
  Report Type: 
  Country: None (occurrence: None)
  Receive Date: 20101220
  Receipt Date: 20101213
  Transmission Date: 20110411
  Serious: Yes (Life-Threatening, Hospitalization, Other)
  Sender: FDA-Public Use
  Company Number: US-ELI_LILLY_AND_COMPANY-US201006004018

PATIENT
  Sex: Female

DRUGS (16)
  1. FORTEO [Suspect]
     Indication: OSTEOPOROSIS
     Dosage: 20 UG, DAILY (1/D)
     Dates: start: 20100401
  2. PREVACID [Concomitant]
     Dosage: 30 MG, DAILY (1/D)
  3. DEPO-PROVERA [Concomitant]
     Dosage: UNK, ONCE EVERY 3MONTHS
     Route: 065
  4. ACTEMRA [Concomitant]
     Indication: ARTHRITIS
     Dosage: UNK, MONTHLY (1/M)
  5. PHENERGAN [Concomitant]
     Indication: NAUSEA
     Dosage: 25 MG, 4/D
  6. IRON [Concomitant]
  7. RESTORIL [Concomitant]
     Indication: INSOMNIA
     Dosage: 30 MG, EACH EVENING
  8. FISH OIL [Concomitant]
  9. KEPPRA [Concomitant]
     Dosage: 500 MG, 2/D
     Route: 048
  10. KEPPRA [Concomitant]
     Dosage: 500 MG, ONE TABLET FOR 5DAYS (2ROUNDS)
     Route: 048
  11. FERROUS SULFATE [Concomitant]
     Dosage: 325 MG, 2/D
  12. LASIX [Concomitant]
     Dosage: 20 MG, EACH MORNING
  13. NITROGLYCERIN [Concomitant]
     Dosage: UNK, UNKNOWN
     Route: 065
  14. OXYGEN [Concomitant]
     Dosage: UNK, ALL THE TIME
     Route: 065
  15. POTASSIUM [Concomitant]
     Dosage: 10 MEQ, DAILY (1/D)
  16. OXYCODONE HCL [Concomitant]
     Dosage: 10 MG, AS NEEDED 3 TIMES A DAY

REACTIONS (39)
  - ABDOMINAL PAIN UPPER [None]
  - AMNESIA [None]
  - ARTHRALGIA [None]
  - ARTHROPATHY [None]
  - BACK PAIN [None]
  - BLOOD CALCIUM DECREASED [None]
  - BLOOD PRESSURE DECREASED [None]
  - CLAVICLE FRACTURE [None]
  - CONTUSION [None]
  - CYANOSIS [None]
  - DIPLOPIA [None]
  - DIZZINESS [None]
  - DYSARTHRIA [None]
  - DYSPHEMIA [None]
  - EATING DISORDER [None]
  - GAIT DISTURBANCE [None]
  - GRAND MAL CONVULSION [None]
  - HAND FRACTURE [None]
  - HUMERUS FRACTURE [None]
  - INJECTION SITE PAIN [None]
  - INTERVERTEBRAL DISC DEGENERATION [None]
  - JOINT SWELLING [None]
  - LETHARGY [None]
  - LOCALISED OEDEMA [None]
  - LYMPHOMA [None]
  - MENTAL IMPAIRMENT [None]
  - NASOPHARYNGITIS [None]
  - NERVOUSNESS [None]
  - OEDEMA PERIPHERAL [None]
  - PAIN [None]
  - PALLOR [None]
  - PETIT MAL EPILEPSY [None]
  - PYREXIA [None]
  - RAYNAUD'S PHENOMENON [None]
  - RESPIRATORY ARREST [None]
  - STRESS [None]
  - UPPER LIMB FRACTURE [None]
  - VISUAL ACUITY REDUCED [None]
  - VITAMIN D DECREASED [None]
